FAERS Safety Report 9783920 (Version 3)
Quarter: 2014Q2

REPORT INFORMATION
  Report Type: Spontaneous
  Country: FR (occurrence: FR)
  Receive Date: 20131226
  Receipt Date: 20140418
  Transmission Date: 20141212
  Serious: Yes (Other)
  Sender: FDA-Public Use
  Company Number: PHHY2013FR151481

PATIENT
  Age: 80 Year
  Sex: Female
  Weight: 63 kg

DRUGS (3)
  1. LOSARTAN+HYDROCHLOROTHIAZIDE SANDOZ [Suspect]
     Indication: HYPERTENSION
     Dosage: 1 DF, QD
     Route: 048
     Dates: start: 20131211
  2. ZELITREX [Concomitant]
     Indication: HERPES SIMPLEX
  3. ZOVIRAX [Concomitant]
     Indication: HERPES SIMPLEX

REACTIONS (2)
  - Herpes simplex [Recovered/Resolved]
  - Pruritus [Recovered/Resolved]
